FAERS Safety Report 11920259 (Version 9)
Quarter: 2016Q1

REPORT INFORMATION
  Report Type: Report from Study
  Country: US (occurrence: US)
  Receive Date: 20160115
  Receipt Date: 20160330
  Transmission Date: 20160526
  Serious: Yes (Hospitalization, Other)
  Sender: FDA-Public Use
  Company Number: US-BAYER-2016-008183

PATIENT
  Age: 52 Year
  Sex: Male
  Weight: 99.77 kg

DRUGS (9)
  1. ADEMPAS [Suspect]
     Active Substance: RIOCIGUAT
     Indication: PULMONARY ARTERIAL HYPERTENSION
     Dosage: 1.5 MG, TID
  2. ADEMPAS [Suspect]
     Active Substance: RIOCIGUAT
     Indication: PULMONARY ARTERIAL HYPERTENSION
     Dosage: 2 MG, TID
  3. OPSUMIT [Suspect]
     Active Substance: MACITENTAN
  4. ADEMPAS [Suspect]
     Active Substance: RIOCIGUAT
     Indication: PULMONARY ARTERIAL HYPERTENSION
     Dosage: 1.5 MG, TID
  5. ADEMPAS [Suspect]
     Active Substance: RIOCIGUAT
     Indication: PULMONARY ARTERIAL HYPERTENSION
     Dosage: 2.5 MG, TID
     Route: 048
  6. ADEMPAS [Suspect]
     Active Substance: RIOCIGUAT
     Indication: PULMONARY ARTERIAL HYPERTENSION
     Dosage: UNK
     Dates: start: 20151228
  7. XARELTO [Suspect]
     Active Substance: RIVAROXABAN
     Dosage: UNK
  8. OPSUMIT [Concomitant]
     Active Substance: MACITENTAN
  9. VELETRI [Concomitant]
     Active Substance: EPOPROSTENOL

REACTIONS (13)
  - Sepsis [Unknown]
  - Device occlusion [None]
  - Fatigue [Unknown]
  - Disorientation [None]
  - Gastrointestinal haemorrhage [Unknown]
  - Dyspnoea [Unknown]
  - Vascular access complication [Unknown]
  - Abdominal pain [Unknown]
  - Thrombosis in device [Unknown]
  - Pneumonia [None]
  - Urinary tract infection [None]
  - Device occlusion [Unknown]
  - Malaise [Unknown]

NARRATIVE: CASE EVENT DATE: 20160112
